FAERS Safety Report 16608715 (Version 1)
Quarter: 2019Q3

REPORT INFORMATION
  Report Type: Report from Study
  Country: US (occurrence: US)
  Receive Date: 20190722
  Receipt Date: 20190722
  Transmission Date: 20191004
  Serious: Yes (Other)
  Sender: FDA-Public Use
  Company Number: US-GILEAD-2019-0419176

PATIENT
  Sex: Female

DRUGS (13)
  1. GABAPENTIN. [Concomitant]
     Active Substance: GABAPENTIN
  2. HYZAAR [Concomitant]
     Active Substance: HYDROCHLOROTHIAZIDE\LOSARTAN POTASSIUM
  3. TRESIBA [Concomitant]
     Active Substance: INSULIN DEGLUDEC
  4. AMBRISENTAN [Suspect]
     Active Substance: AMBRISENTAN
     Indication: PRODUCT USED FOR UNKNOWN INDICATION
     Dosage: 10 MG, UNKNOWN
     Route: 065
  5. VERAPAMIL [Concomitant]
     Active Substance: VERAPAMIL HYDROCHLORIDE
  6. ALYQ [TADALAFIL] [Concomitant]
  7. METOLAZONE. [Concomitant]
     Active Substance: METOLAZONE
  8. NOVOLOG [Concomitant]
     Active Substance: INSULIN ASPART
  9. CRESTOR [Concomitant]
     Active Substance: ROSUVASTATIN CALCIUM
  10. FLOVENT [Concomitant]
     Active Substance: FLUTICASONE PROPIONATE
  11. HYDRALAZINE [Concomitant]
     Active Substance: HYDRALAZINE HYDROCHLORIDE
  12. METFORMIN [Concomitant]
     Active Substance: METFORMIN HYDROCHLORIDE
  13. PROPAFENONE. [Concomitant]
     Active Substance: PROPAFENONE

REACTIONS (3)
  - Cough [Unknown]
  - Pneumonia [Unknown]
  - Pyrexia [Unknown]
